FAERS Safety Report 8111178-0 (Version None)
Quarter: 2012Q1

REPORT INFORMATION
  Report Type: 
  Country: None (occurrence: None)
  Receive Date: 20120203
  Receipt Date: 20110530
  Transmission Date: 20120608
  Serious: No
  Sender: FDA-Public Use
  Company Number: US-GLAXOSMITHKLINE-A0930424A

PATIENT
  Sex: Female

DRUGS (3)
  1. BUPROPION HCL [Concomitant]
     Dosage: 300MG PER DAY
     Route: 048
  2. LAMOTRIGINE [Suspect]
     Indication: BIPOLAR DISORDER
     Dosage: 200MG TWICE PER DAY
     Route: 048
  3. LEXAPRO [Concomitant]
     Dosage: 20MG PER DAY
     Route: 048

REACTIONS (2)
  - EMOTIONAL DISORDER [None]
  - DRUG INEFFECTIVE [None]
